FAERS Safety Report 12870411 (Version 1)
Quarter: 2016Q4

REPORT INFORMATION
  Report Type: Report from Study
  Country: US (occurrence: US)
  Receive Date: 20161020
  Receipt Date: 20161020
  Transmission Date: 20170207
  Serious: No
  Sender: FDA-Public Use
  Company Number: US-AMGEN-USASL2016129563

PATIENT
  Age: 33 Year
  Sex: Female
  Weight: 58 kg

DRUGS (7)
  1. CORLANOR [Suspect]
     Active Substance: IVABRADINE HYDROCHLORIDE
     Indication: PRODUCT USED FOR UNKNOWN INDICATION
     Dosage: 5 MG, BID
     Route: 048
  2. PROPRANOLOL [Concomitant]
     Active Substance: PROPRANOLOL\PROPRANOLOL HYDROCHLORIDE
     Dosage: 60 MG, QD
  3. ZOLOFT [Concomitant]
     Active Substance: SERTRALINE HYDROCHLORIDE
     Dosage: 150 MG, QD
  4. MIDODRINE [Concomitant]
     Active Substance: MIDODRINE
     Dosage: 15 MG, QID
  5. POTASSIUM [Concomitant]
     Active Substance: POTASSIUM
  6. NUVIGIL [Concomitant]
     Active Substance: ARMODAFINIL
     Dosage: 50 MG, QD
  7. SYNTHROID [Concomitant]
     Active Substance: LEVOTHYROXINE SODIUM
     Dosage: 75 MUG, QD

REACTIONS (1)
  - Off label use [Unknown]
